FAERS Safety Report 21342473 (Version 2)
Quarter: 2022Q3

REPORT INFORMATION
  Report Type: Spontaneous
  Country: FR (occurrence: FR)
  Receive Date: 20220916
  Receipt Date: 20220927
  Transmission Date: 20221027
  Serious: Yes (Other)
  Sender: FDA-Public Use
  Company Number: FR-NOVARTISPH-NVSC2022FR208885

PATIENT
  Age: 70 Year
  Sex: Male
  Weight: 82 kg

DRUGS (11)
  1. TACROLIMUS [Suspect]
     Active Substance: TACROLIMUS
     Indication: Renal transplant
     Dosage: UNK, QD
     Route: 048
     Dates: start: 20210923
  2. CERTICAN [Concomitant]
     Active Substance: EVEROLIMUS
     Indication: Immunosuppression
     Dosage: 2 (UNITS NOT SPECIFIED), TOTAL DAILY DOSE
     Route: 065
     Dates: start: 20200305, end: 20200315
  3. CERTICAN [Concomitant]
     Active Substance: EVEROLIMUS
     Dosage: 2.5 (UNITS NOT SPECIFIED), TOTAL DAILY DOSE
     Route: 065
     Dates: start: 20200316, end: 20200617
  4. CERTICAN [Concomitant]
     Active Substance: EVEROLIMUS
     Dosage: 3 (UNITS NOT SPECIFIED), TOTAL DAILY DOSE
     Route: 065
     Dates: start: 20200618, end: 20200716
  5. CERTICAN [Concomitant]
     Active Substance: EVEROLIMUS
     Dosage: 3.5 (UNITS NOT SPECIFIED), TOTAL DAILY DOSE
     Route: 065
     Dates: start: 20200717, end: 20210712
  6. CERTICAN [Concomitant]
     Active Substance: EVEROLIMUS
     Dosage: 3.25 (UNITS NOT SPECIFIED), TOTAL DAILY DOSE
     Route: 065
     Dates: start: 20210713, end: 20210922
  7. CERTICAN [Concomitant]
     Active Substance: EVEROLIMUS
     Dosage: 3.5 (UNITS NOT SPECIFIED), TOTAL DAILY DOSE
     Route: 065
     Dates: start: 20210923, end: 20211020
  8. CERTICAN [Concomitant]
     Active Substance: EVEROLIMUS
     Dosage: 3.75 (UNITS NOT SPECIFIED), TOTAL DAILY DOSE
     Route: 065
     Dates: start: 20211021, end: 20211129
  9. CERTICAN [Concomitant]
     Active Substance: EVEROLIMUS
     Dosage: 3.5 (UNITS NOT SPECIFIED), TOTAL DAILY DOSE
     Route: 065
     Dates: start: 20211130, end: 20220120
  10. CERTICAN [Concomitant]
     Active Substance: EVEROLIMUS
     Dosage: 3 DOSAGE FORM, QD
     Route: 065
     Dates: start: 20220121
  11. PREDNISONE [Concomitant]
     Active Substance: PREDNISONE
     Indication: Immunosuppression
     Dosage: 5 (UNITS NOT SPECIFIED), TOTAL DAILY DOSE
     Route: 065
     Dates: start: 20200211

REACTIONS (1)
  - Erysipelas [Recovered/Resolved]

NARRATIVE: CASE EVENT DATE: 20220129
